FAERS Safety Report 14889420 (Version 1)
Quarter: 2018Q2

REPORT INFORMATION
  Report Type: Spontaneous
  Country: BR (occurrence: BR)
  Receive Date: 20180514
  Receipt Date: 20180514
  Transmission Date: 20180711
  Serious: Yes (Other)
  Sender: FDA-Public Use
  Company Number: BR-ORION CORPORATION ORION PHARMA-ENTC2018-0157

PATIENT
  Sex: Male
  Weight: 75 kg

DRUGS (6)
  1. DONAREN [Concomitant]
     Active Substance: TRAZODONE HYDROCHLORIDE
     Route: 065
  2. STALEVO [Suspect]
     Active Substance: CARBIDOPA\ENTACAPONE\LEVODOPA
     Indication: PARKINSON^S DISEASE
     Dosage: STRENGTH- LEVODOPA 37.5-CARBIDOPA 200-ENTACAPONE 150
     Route: 048
  3. STALEVO [Suspect]
     Active Substance: CARBIDOPA\ENTACAPONE\LEVODOPA
     Route: 048
  4. PROLOPA [Concomitant]
     Active Substance: BENSERAZIDE\LEVODOPA
     Route: 065
  5. MANTIDAN [Concomitant]
     Active Substance: AMANTADINE HYDROCHLORIDE
     Route: 065
  6. STABIL [Concomitant]
     Active Substance: PRAMIPEXOLE DIHYDROCHLORIDE
     Route: 065

REACTIONS (3)
  - Drug dispensing error [Unknown]
  - Parkinson^s disease [Not Recovered/Not Resolved]
  - Intentional product use issue [Unknown]
